FAERS Safety Report 20333723 (Version 1)
Quarter: 2022Q1

REPORT INFORMATION
  Report Type: Spontaneous
  Country: US (occurrence: None)
  Receive Date: 20220113
  Receipt Date: 20220113
  Transmission Date: 20220423
  Serious: Yes (Life-Threatening, Hospitalization)
  Sender: FDA-Public Use
  Company Number: None

PATIENT
  Age: 75 Year
  Sex: Male
  Weight: 128.6 kg

DRUGS (15)
  1. NITROGLYCERIN [Suspect]
     Active Substance: NITROGLYCERIN
     Indication: Chest pain
     Dosage: OTHER QUANTITY : 5 UGM/KG;?
     Route: 040
     Dates: start: 20220106, end: 20220106
  2. ALLOPURINOL [Concomitant]
     Active Substance: ALLOPURINOL
  3. ASPIRIN [Concomitant]
     Active Substance: ASPIRIN
  4. Atowastatin 40mg [Concomitant]
  5. Vitamin D3 25mcg [Concomitant]
  6. TOVIAZ [Concomitant]
     Active Substance: FESOTERODINE FUMARATE
  7. Lantus 48 units [Concomitant]
  8. LISINOPRIL [Concomitant]
     Active Substance: LISINOPRIL
  9. Metforrnin 500mg [Concomitant]
  10. METOPROLOL TARTRATE [Concomitant]
     Active Substance: METOPROLOL TARTRATE
  11. Centrum Silver Ultra Men^s [Concomitant]
  12. PANTOPRAZOLE SODIUM [Concomitant]
     Active Substance: PANTOPRAZOLE SODIUM
  13. Pioglitazone 15mg [Concomitant]
  14. Sodium Bicarbonate 650mg [Concomitant]
  15. TICAGRELOR [Concomitant]
     Active Substance: TICAGRELOR

REACTIONS (3)
  - Acute myocardial infarction [None]
  - Wrong technique in product usage process [None]
  - Incorrect dose administered [None]

NARRATIVE: CASE EVENT DATE: 20220106
